FAERS Safety Report 17006486 (Version 1)
Quarter: 2019Q4

REPORT INFORMATION
  Report Type: Spontaneous
  Country: US (occurrence: US)
  Receive Date: 20191106
  Receipt Date: 20191106
  Transmission Date: 20200122
  Serious: Yes (Life-Threatening, Hospitalization)
  Sender: FDA-Public Use
  Company Number: None

PATIENT
  Age: 85 Year
  Sex: Female
  Weight: 85.2 kg

DRUGS (3)
  1. DARATUMUMAB [Concomitant]
     Active Substance: DARATUMUMAB
     Dates: start: 20191014
  2. DEXAMETHASONE. [Concomitant]
     Active Substance: DEXAMETHASONE
     Dates: start: 20191014
  3. LENALIDOMIDE [Suspect]
     Active Substance: LENALIDOMIDE
     Indication: PLASMA CELL MYELOMA
     Dosage: ?          OTHER FREQUENCY:21 DAYS ON 7 OFF;?
     Route: 048
     Dates: start: 20191014

REACTIONS (2)
  - Embolism venous [None]
  - Pulmonary embolism [None]

NARRATIVE: CASE EVENT DATE: 20191101
